FAERS Safety Report 7211120-0 (Version None)
Quarter: 2010Q4

REPORT INFORMATION
  Report Type: 
  Country: None (occurrence: None)
  Receive Date: 20101223
  Receipt Date: 20101213
  Transmission Date: 20110411
  Serious: Yes (Life-Threatening, Hospitalization)
  Sender: FDA-Public Use
  Company Number: 2010P1003268

PATIENT
  Age: 33 Year
  Sex: Female

DRUGS (13)
  1. ULTIVA [Suspect]
     Indication: GENERAL ANAESTHESIA
     Dosage: 0.3 MCG/KG/MIN; IV
     Route: 042
     Dates: start: 20080710, end: 20080710
  2. SEVORANE LIQUID FOR INHALATION (NO PREF. NAME) [Suspect]
     Indication: GENERAL ANAESTHESIA
     Dosage: 3 L/M; INH
     Route: 055
     Dates: start: 20080710, end: 20080710
  3. ALDOMET (NO PREF. NAME) [Suspect]
     Indication: HYPERTENSION
     Dosage: 250 MG,BID, PO
     Route: 048
     Dates: start: 20080605
  4. NOVORAPID (NO PREF. NAME) [Suspect]
     Indication: DIABETES MELLITUS
     Dosage: 4 UNITS TID SC, 10 UNITS, TID, SC
     Route: 058
     Dates: start: 20080621, end: 20080601
  5. NOVORAPID (NO PREF. NAME) [Suspect]
     Indication: DIABETES MELLITUS
     Dosage: 4 UNITS TID SC, 10 UNITS, TID, SC
     Route: 058
     Dates: start: 20080626
  6. SLOW K (NO PREF. NAME) [Suspect]
     Indication: HYPOKALAEMIA
     Dosage: 2 TABLETS, BID; PO
     Route: 048
     Dates: start: 20080626
  7. THIOPENTAL SODIUM [Concomitant]
  8. VECURONIUM BROMIDE [Concomitant]
  9. BROMIDE [Concomitant]
  10. ROPIVACAINE [Concomitant]
  11. HYDROCHLORIDE [Concomitant]
  12. THORACIC EDPDURAL ANESTHESIA [Concomitant]
  13. DEXMEDETOMIDINE HYDROCHLORIDE [Concomitant]

REACTIONS (4)
  - DRUG EXPOSURE DURING PREGNANCY [None]
  - DYSPNOEA [None]
  - HAEMOPTYSIS [None]
  - PULMONARY OEDEMA [None]
